FAERS Safety Report 25530209 (Version 1)
Quarter: 2025Q3

REPORT INFORMATION
  Report Type: Spontaneous
  Country: US (occurrence: None)
  Receive Date: 20250708
  Receipt Date: 20250708
  Transmission Date: 20251021
  Serious: No
  Sender: FDA-CTU
  Company Number: None

PATIENT
  Age: 89 Year
  Sex: Female

DRUGS (7)
  1. XDEMVY [Suspect]
     Active Substance: LOTILANER
     Indication: Ocular demodicosis
     Dosage: 1 GTT DROP(S) TWICE A DAY OPHTHALMIC ?
     Route: 047
     Dates: start: 20250506, end: 20250506
  2. DORZOLAMIDE [Concomitant]
     Active Substance: DORZOLAMIDE
  3. ALLOPURINOL [Concomitant]
     Active Substance: ALLOPURINOL
  4. IRBESARTAN [Concomitant]
     Active Substance: IRBESARTAN
  5. VITAMINS [Concomitant]
     Active Substance: VITAMINS
  6. FERROUS SULFATE [Concomitant]
     Active Substance: FERROUS SULFATE
  7. VITAMIN D [Concomitant]
     Active Substance: VITAMIN D NOS

REACTIONS (1)
  - Rash [None]

NARRATIVE: CASE EVENT DATE: 20250708
